FAERS Safety Report 23226554 (Version 1)
Quarter: 2023Q4

REPORT INFORMATION
  Report Type: Spontaneous
  Country: CN (occurrence: CN)
  Receive Date: 20231124
  Receipt Date: 20231124
  Transmission Date: 20240109
  Serious: Yes (Other)
  Sender: FDA-Public Use
  Company Number: CN-PFIZER INC-PV202300188781

PATIENT
  Age: 24 Year
  Sex: Female
  Weight: 71 kg

DRUGS (6)
  1. CARBOPROST TROMETHAMINE [Suspect]
     Active Substance: CARBOPROST TROMETHAMINE
     Indication: Uterine hypotonus
     Dosage: 250 UG, 1X/DAY
     Route: 030
     Dates: start: 20231103, end: 20231103
  2. CARBETOCIN [Suspect]
     Active Substance: CARBETOCIN
     Indication: Uterine hypotonus
     Dosage: 100 UG, 1X/DAY
     Route: 042
     Dates: start: 20231103, end: 20231103
  3. OXYTOCIN [Suspect]
     Active Substance: OXYTOCIN
     Indication: Uterine hypotonus
     Dosage: 20 UNITS, 1X/DAY
     Route: 041
     Dates: start: 20231103, end: 20231103
  4. CALCIUM GLUCONATE [Suspect]
     Active Substance: CALCIUM GLUCONATE
     Indication: Uterine hypotonus
     Dosage: 1 G, 1X/DAY
     Route: 041
     Dates: start: 20231103, end: 20231103
  5. CALCIUM CHLORIDE\POTASSIUM CHLORIDE\SODIUM CHLORIDE\SODIUM LACTATE [Concomitant]
     Active Substance: CALCIUM CHLORIDE\POTASSIUM CHLORIDE\SODIUM CHLORIDE\SODIUM LACTATE
     Indication: Electrolyte imbalance
     Dosage: 500 ML, 1X/DAY
     Route: 041
     Dates: start: 20231103, end: 20231103
  6. DEXTROSE [Concomitant]
     Active Substance: DEXTROSE\DEXTROSE MONOHYDRATE
     Indication: Vehicle solution use
     Dosage: 100 ML, 1X/DAY
     Route: 041
     Dates: start: 20231103, end: 20231103

REACTIONS (2)
  - Abdominal discomfort [Recovering/Resolving]
  - Abdominal pain upper [Recovering/Resolving]

NARRATIVE: CASE EVENT DATE: 20231103
